FAERS Safety Report 15855212 (Version 5)
Quarter: 2019Q2

REPORT INFORMATION
  Report Type: Spontaneous
  Country: US (occurrence: US)
  Receive Date: 20190122
  Receipt Date: 20190614
  Transmission Date: 20190711
  Serious: No
  Sender: FDA-Public Use
  Company Number: US-PFIZER INC-2019028562

PATIENT
  Age: 73 Year
  Sex: Female
  Weight: 104 kg

DRUGS (1)
  1. XELJANZ [Suspect]
     Active Substance: TOFACITINIB CITRATE
     Indication: RHEUMATOID ARTHRITIS
     Dosage: 5 MG, 2X/DAY
     Dates: start: 20180830

REACTIONS (16)
  - Dysuria [Unknown]
  - Musculoskeletal pain [Unknown]
  - Myalgia [Not Recovered/Not Resolved]
  - Ligament rupture [Unknown]
  - Condition aggravated [Not Recovered/Not Resolved]
  - Tremor [Unknown]
  - Drug ineffective [Unknown]
  - Product dose omission [Unknown]
  - Hepatic enzyme increased [Unknown]
  - Peripheral swelling [Unknown]
  - Muscle spasms [Not Recovered/Not Resolved]
  - Arthritis [Unknown]
  - Anaemia [Unknown]
  - Chronic obstructive pulmonary disease [Unknown]
  - Emphysema [Unknown]
  - Gait disturbance [Unknown]

NARRATIVE: CASE EVENT DATE: 2018
